FAERS Safety Report 18463981 (Version 10)
Quarter: 2024Q2

REPORT INFORMATION
  Report Type: Report from Study
  Country: BR (occurrence: BR)
  Receive Date: 20201104
  Receipt Date: 20240603
  Transmission Date: 20240716
  Serious: Yes (Death, Hospitalization, Other)
  Sender: FDA-Public Use
  Company Number: BR-TAKEDA-BR202030393

PATIENT
  Age: 7 Year
  Sex: Male
  Weight: 38 kg

DRUGS (5)
  1. IDURSULFASE [Suspect]
     Active Substance: IDURSULFASE
     Indication: Mucopolysaccharidosis II
     Dosage: 3 DOSAGE FORM, 1/WEEK
     Route: 065
     Dates: start: 201805
  2. IDURSULFASE [Suspect]
     Active Substance: IDURSULFASE
     Dosage: 2 DOSAGE FORM, 1/WEEK
     Route: 042
     Dates: start: 202102
  3. IDURSULFASE [Suspect]
     Active Substance: IDURSULFASE
     Dosage: UNK
     Route: 042
  4. DIPHENHYDRAMINE [Concomitant]
     Active Substance: DIPHENHYDRAMINE
     Dosage: UNK
     Route: 065
  5. METHYLPREDNISOLONE [Concomitant]
     Active Substance: METHYLPREDNISOLONE
     Dosage: UNK
     Route: 065

REACTIONS (20)
  - Cardiac arrest [Fatal]
  - Femur fracture [Recovered/Resolved with Sequelae]
  - Rash erythematous [Recovered/Resolved]
  - Posthaemorrhagic hydrocephalus [Unknown]
  - Fall [Recovered/Resolved]
  - Weight increased [Unknown]
  - Infusion related reaction [Unknown]
  - Infusion related hypersensitivity reaction [Unknown]
  - Stress [Unknown]
  - Motion sickness [Unknown]
  - Influenza [Unknown]
  - Drug hypersensitivity [Unknown]
  - Infusion site erythema [Unknown]
  - Infusion site irritation [Unknown]
  - Influenza like illness [Unknown]
  - Skin discolouration [Unknown]
  - Erythema [Unknown]
  - Inappropriate schedule of product administration [Unknown]
  - Product availability issue [Unknown]
  - Off label use [Unknown]

NARRATIVE: CASE EVENT DATE: 20191117
